FAERS Safety Report 20964072 (Version 1)
Quarter: 2022Q2

REPORT INFORMATION
  Report Type: Spontaneous
  Country: IT (occurrence: IT)
  Receive Date: 20220615
  Receipt Date: 20220615
  Transmission Date: 20220721
  Serious: Yes (Other)
  Sender: FDA-Public Use
  Company Number: IT-LUNDBECK-DKLU3048901

PATIENT
  Age: 69 Year
  Sex: Female

DRUGS (1)
  1. BRINTELLIX [Suspect]
     Active Substance: VORTIOXETINE HYDROBROMIDE
     Indication: Depression
     Dosage: 1 DOSAGE FORM, QD
     Route: 065
     Dates: start: 20220531

REACTIONS (6)
  - Diarrhoea haemorrhagic [Recovered/Resolved]
  - Abdominal pain upper [Recovered/Resolved]
  - Erythema [Unknown]
  - Headache [Not Recovered/Not Resolved]
  - Vomiting [Recovered/Resolved]
  - Pruritus [Unknown]

NARRATIVE: CASE EVENT DATE: 20220603
